FAERS Safety Report 6649686-1 (Version None)
Quarter: 2010Q1

REPORT INFORMATION
  Report Type: 
  Country: None (occurrence: None)
  Receive Date: 20100324
  Receipt Date: 20090623
  Transmission Date: 20100710
  Serious: No
  Sender: FDA-Public Use
  Company Number: US-AMGEN-KDL348054

PATIENT
  Sex: Female
  Weight: 76.6 kg

DRUGS (5)
  1. NEULASTA [Suspect]
     Indication: CHEMOTHERAPY
     Dates: start: 20090520
  2. CYTOXAN [Suspect]
     Dates: start: 20090520, end: 20090520
  3. COMPAZINE [Concomitant]
  4. EPIRUBICIN [Concomitant]
     Dates: start: 20090520, end: 20090520
  5. FLUOROURACIL [Concomitant]
     Dates: start: 20090520, end: 20090520

REACTIONS (1)
  - FLUSHING [None]
